FAERS Safety Report 6858955-1 (Version None)
Quarter: 2010Q3

REPORT INFORMATION
  Report Type: 
  Country: None (occurrence: None)
  Receive Date: 20100719
  Receipt Date: 20080212
  Transmission Date: 20110219
  Serious: No
  Sender: FDA-Public Use
  Company Number: US-PFIZER INC-2008016770

PATIENT
  Sex: Female

DRUGS (7)
  1. CHANTIX [Suspect]
     Indication: SMOKING CESSATION THERAPY
     Dosage: EVERY DAY
     Route: 048
     Dates: start: 20070101
  2. DIPHENHYDRAMINE [Concomitant]
  3. LISINOPRIL AND HYDROCHLOROTHIAZIDE [Concomitant]
  4. GABAPENTIN [Concomitant]
  5. CELEXA [Concomitant]
  6. LEVOXYL [Concomitant]
  7. MULTI-VITAMINS [Concomitant]

REACTIONS (3)
  - NASOPHARYNGITIS [None]
  - NAUSEA [None]
  - VOMITING [None]
